FAERS Safety Report 8264337-0 (Version None)
Quarter: 2012Q2

REPORT INFORMATION
  Report Type: 
  Country: None (occurrence: None)
  Receive Date: 20120406
  Receipt Date: 20120330
  Transmission Date: 20120825
  Serious: Yes (Hospitalization, Other)
  Sender: FDA-Public Use
  Company Number: US-PFIZER INC-2012083038

PATIENT
  Sex: Female

DRUGS (2)
  1. COPAXONE [Suspect]
     Indication: MULTIPLE SCLEROSIS
     Dosage: UNK MG, UNK
     Route: 058
     Dates: start: 20070315
  2. NEURONTIN [Suspect]
     Dosage: UNK

REACTIONS (3)
  - URINARY TRACT INFECTION [None]
  - CONVULSION [None]
  - OVERDOSE [None]
